FAERS Safety Report 9426840 (Version 1)
Quarter: 2013Q3

REPORT INFORMATION
  Report Type: Spontaneous
  Country: US (occurrence: US)
  Receive Date: 20130730
  Receipt Date: 20130730
  Transmission Date: 20140515
  Serious: Yes (Other)
  Sender: FDA-Public Use
  Company Number: US-SANOFI-AVENTIS-2013SA046667

PATIENT
  Age: 52 Year
  Sex: Female

DRUGS (1)
  1. AMBIEN [Suspect]
     Indication: SLEEP DISORDER
     Dosage: PRODUCT START DATE:1999 OR 2000
     Route: 048

REACTIONS (2)
  - Somnambulism [Recovered/Resolved]
  - Impaired driving ability [Recovered/Resolved]
